FAERS Safety Report 4899305-X (Version None)
Quarter: 2006Q1

REPORT INFORMATION
  Report Type: 
  Country: None (occurrence: None)
  Receive Date: 20060131
  Receipt Date: 20060118
  Transmission Date: 20060701
  Serious: Yes (Death)
  Sender: FDA-Public Use
  Company Number: 2005097015

PATIENT
  Age: 72 Year
  Sex: Female

DRUGS (3)
  1. ZYVOX [Suspect]
     Indication: PNEUMONIA STAPHYLOCOCCAL
     Dosage: 1200 ML (600 MG, 2 IN 1 D), INTRAVENOUS
     Route: 042
     Dates: start: 20040907, end: 20040915
  2. MAXIPIME [Concomitant]
  3. CIPROFLOXACIN HYDROCHLORIDE [Concomitant]

REACTIONS (4)
  - DISSEMINATED INTRAVASCULAR COAGULATION [None]
  - LUNG INFECTION PSEUDOMONAL [None]
  - SHOCK [None]
  - SUPERINFECTION [None]
